FAERS Safety Report 9222816 (Version 1)
Quarter: 2013Q2

REPORT INFORMATION
  Report Type: Report from Study
  Country: CN (occurrence: CN)
  Receive Date: 20130410
  Receipt Date: 20130410
  Transmission Date: 20140414
  Serious: Yes (Death)
  Sender: FDA-Public Use
  Company Number: CN-ROCHE-1207482

PATIENT
  Sex: Male
  Weight: 60 kg

DRUGS (7)
  1. ALTEPLASE [Suspect]
     Indication: ACUTE MYOCARDIAL INFARCTION
     Route: 040
     Dates: start: 20021023, end: 20021023
  2. ALTEPLASE [Suspect]
     Route: 042
  3. HEPARIN [Concomitant]
     Indication: INTRA-AORTIC BALLOON PLACEMENT
     Dosage: 720 HR/INFUSION
     Route: 040
     Dates: start: 20021023, end: 20021030
  4. ASPIRIN [Concomitant]
     Indication: ANGINA UNSTABLE
     Dosage: 100 MG, 200 MG
     Route: 042
     Dates: start: 20021023, end: 20021031
  5. DIGOXIN [Concomitant]
     Indication: CARDIAC FAILURE CONGESTIVE
     Route: 048
     Dates: start: 20021023, end: 20021031
  6. FOSINOPRIL [Concomitant]
     Indication: CARDIAC FAILURE CONGESTIVE
     Dosage: 10 MG, 10 MG
     Route: 048
     Dates: start: 20021023, end: 20021031
  7. ENOXAPARIN [Concomitant]
     Indication: ANGINA UNSTABLE
     Route: 058
     Dates: start: 20021030, end: 20021031

REACTIONS (1)
  - Sudden death [Fatal]
